FAERS Safety Report 5178112-7 (Version None)
Quarter: 2006Q4

REPORT INFORMATION
  Report Type: 
  Country: None (occurrence: None)
  Receive Date: 20061218
  Receipt Date: 20061004
  Transmission Date: 20070319
  Serious: Yes (Hospitalization, Other)
  Sender: FDA-Public Use
  Company Number: US-ELI_LILLY_AND_COMPANY-US200610000982

PATIENT
  Age: 46 Year
  Sex: Female

DRUGS (7)
  1. FORTEO [Suspect]
     Indication: OSTEOPOROSIS
     Dosage: UNK, UNK
     Dates: start: 20060501, end: 20060901
  2. FORTEO [Suspect]
     Dosage: UNK, UNK
     Dates: start: 20060927, end: 20061001
  3. FORTEO [Suspect]
     Dosage: UNK, UNK
     Dates: start: 20060101
  4. IMITREX [Concomitant]
  5. FIORICET [Concomitant]
  6. SKELAXIN [Concomitant]
  7. AMITRIPTYLINE HCL [Concomitant]

REACTIONS (7)
  - HYSTERECTOMY [None]
  - INJECTION SITE BRUISING [None]
  - NAUSEA [None]
  - OVARIAN CANCER [None]
  - SOMNOLENCE [None]
  - TOOTH DISORDER [None]
  - UTERINE CANCER [None]
